FAERS Safety Report 5815050-8 (Version None)
Quarter: 2008Q3

REPORT INFORMATION
  Report Type: 
  Country: None (occurrence: None)
  Receive Date: 20080718
  Receipt Date: 20080711
  Transmission Date: 20090109
  Serious: Yes (Other)
  Sender: FDA-Public Use
  Company Number: B0529631A

PATIENT
  Age: 67 Year
  Sex: Male

DRUGS (5)
  1. REQUIP [Suspect]
     Indication: PARKINSON'S DISEASE
     Dosage: 6MG PER DAY
     Route: 048
     Dates: start: 20080301
  2. ALLOPURINOL [Concomitant]
     Indication: DRUG USE FOR UNKNOWN INDICATION
     Dosage: 300MG PER DAY
     Route: 048
  3. ATACAND [Concomitant]
     Indication: DRUG USE FOR UNKNOWN INDICATION
     Dosage: 16MG PER DAY
     Route: 048
  4. TENORETIC 100 [Concomitant]
     Indication: HYPERTENSION
     Dosage: 100MG PER DAY
     Route: 048
  5. PRADIF [Concomitant]
     Dosage: 400MCG PER DAY
     Route: 048

REACTIONS (5)
  - FATIGUE [None]
  - HEPATITIS [None]
  - JAUNDICE [None]
  - TRANSAMINASES INCREASED [None]
  - VOMITING [None]
